FAERS Safety Report 22167774 (Version 1)
Quarter: 2023Q2

REPORT INFORMATION
  Report Type: Spontaneous
  Country: US (occurrence: US)
  Receive Date: 20230403
  Receipt Date: 20230403
  Transmission Date: 20230722
  Serious: No
  Sender: FDA-Public Use
  Company Number: US-UROGEN PHARMA LTD.-2023-UGN-000014

PATIENT

DRUGS (4)
  1. JELMYTO [Suspect]
     Active Substance: MITOMYCIN
     Indication: Transitional cell cancer of the renal pelvis and ureter
     Dosage: 13 CC, ONE TIME PER WEEK (INSTILLATION)
     Dates: start: 20230112, end: 20230112
  2. JELMYTO [Suspect]
     Active Substance: MITOMYCIN
     Dosage: 13 CC, ONE TIME PER WEEK (INSTILLATION)
     Dates: start: 20230119, end: 20230119
  3. JELMYTO [Suspect]
     Active Substance: MITOMYCIN
     Dosage: 13 CC, ONE TIME PER WEEK (INSTILLATION)
     Dates: start: 20230126, end: 20230126
  4. JELMYTO [Suspect]
     Active Substance: MITOMYCIN
     Dosage: 13 CC (INSTILLATION)
     Dates: start: 20230217, end: 20230217

REACTIONS (2)
  - Toxicity to various agents [Unknown]
  - Bladder spasm [Unknown]

NARRATIVE: CASE EVENT DATE: 20230119
